FAERS Safety Report 20132163 (Version 2)
Quarter: 2021Q4

REPORT INFORMATION
  Report Type: Spontaneous
  Country: US (occurrence: US)
  Receive Date: 20211130
  Receipt Date: 20211222
  Transmission Date: 20220303
  Serious: No
  Sender: FDA-Public Use
  Company Number: US-SA-SAC20211122000576

PATIENT
  Age: 8 Year
  Sex: Female

DRUGS (1)
  1. DUPIXENT [Suspect]
     Active Substance: DUPILUMAB
     Dosage: 300 MG (FREQUENCY: OTHER)
     Route: 058
     Dates: start: 20210909, end: 202110

REACTIONS (6)
  - Erythema of eyelid [Unknown]
  - Conjunctivitis [Unknown]
  - Dermatitis [Unknown]
  - Rash erythematous [Unknown]
  - Rash macular [Unknown]
  - Product use issue [Unknown]

NARRATIVE: CASE EVENT DATE: 20210909
